FAERS Safety Report 19208493 (Version 1)
Quarter: 2021Q2

REPORT INFORMATION
  Report Type: Spontaneous
  Country: US (occurrence: US)
  Receive Date: 20210504
  Receipt Date: 20210504
  Transmission Date: 20210717
  Serious: Yes (Hospitalization)
  Sender: FDA-Public Use
  Company Number: US-USWM, LLC-UWM202104-000037

PATIENT
  Age: 77 Year
  Sex: Female

DRUGS (5)
  1. CORGARD [Suspect]
     Active Substance: NADOLOL
     Indication: SUPRAVENTRICULAR TACHYCARDIA
  2. NADOLOL. [Suspect]
     Active Substance: NADOLOL
     Indication: SUPRAVENTRICULAR TACHYCARDIA
     Dosage: NOT PROVIDED
  3. VITAMIN D [Concomitant]
     Active Substance: VITAMIN D NOS
     Dosage: NOT PROVIDED
  4. ZINC. [Concomitant]
     Active Substance: ZINC
     Indication: COVID-19 PROPHYLAXIS
     Dosage: NOT PROVIDED
  5. VITAMIN C [Concomitant]
     Active Substance: ASCORBIC ACID
     Dosage: NOT PROVIDED

REACTIONS (3)
  - Palpitations [Recovered/Resolved]
  - Tachycardia [Recovered/Resolved]
  - Product use in unapproved indication [Unknown]
